FAERS Safety Report 15670598 (Version 1)
Quarter: 2018Q4

REPORT INFORMATION
  Report Type: Report from Study
  Country: US (occurrence: US)
  Receive Date: 20181129
  Receipt Date: 20181129
  Transmission Date: 20190205
  Serious: Yes (Other)
  Sender: FDA-Public Use
  Company Number: US-SAKK-2018SA138426AA

PATIENT
  Age: 62 Year
  Sex: Male
  Weight: 106 kg

DRUGS (7)
  1. INSULIN GLARGINE/LIXISENATIDE [Suspect]
     Active Substance: INSULIN GLARGINE\LIXISENATIDE
     Indication: TYPE 2 DIABETES MELLITUS
     Dosage: 30 IU, QD
     Route: 058
     Dates: start: 20180507
  2. METFORMIN [Concomitant]
     Active Substance: METFORMIN HYDROCHLORIDE
     Indication: DIABETES MELLITUS
     Dosage: 1000 MG, QD
  3. INSULIN GLARGINE/LIXISENATIDE [Suspect]
     Active Substance: INSULIN GLARGINE\LIXISENATIDE
     Dosage: 15-30 IU
     Route: 058
     Dates: start: 20180510
  4. ENALAPRIL [Concomitant]
     Active Substance: ENALAPRIL
     Dosage: UNK
  5. FENOFIBRATE. [Concomitant]
     Active Substance: FENOFIBRATE
     Dosage: UNK MG
  6. PRAVASTATIN. [Concomitant]
     Active Substance: PRAVASTATIN
     Indication: BLOOD CHOLESTEROL INCREASED
     Dosage: 80 MG, QD
  7. SYNTHROID [Concomitant]
     Active Substance: LEVOTHYROXINE SODIUM
     Dosage: 200 MG, QD

REACTIONS (9)
  - Overweight [Unknown]
  - Depression [Unknown]
  - Decreased appetite [Unknown]
  - Product administered at inappropriate site [Unknown]
  - Cyst [Unknown]
  - Back pain [Recovered/Resolved]
  - Blood glucose increased [Unknown]
  - Continuous positive airway pressure [Unknown]
  - Extra dose administered [Unknown]

NARRATIVE: CASE EVENT DATE: 201805
